FAERS Safety Report 17276872 (Version 2)
Quarter: 2020Q1

REPORT INFORMATION
  Report Type: Spontaneous
  Country: US (occurrence: US)
  Receive Date: 20200116
  Receipt Date: 20200220
  Transmission Date: 20200409
  Serious: No
  Sender: FDA-Public Use
  Company Number: US-PFIZER INC-2020019360

PATIENT
  Age: 68 Year
  Sex: Female

DRUGS (2)
  1. ADVIL [Suspect]
     Active Substance: IBUPROFEN
     Indication: PAIN
     Dosage: 600 MG, AS NEEDED (200 MG. TAKE 3 AS NEEDED RARELY BY MOUTH)
     Route: 048
  2. ADVIL [Suspect]
     Active Substance: IBUPROFEN
     Dosage: UNK
     Route: 048

REACTIONS (4)
  - Product use issue [Unknown]
  - Malaise [Recovering/Resolving]
  - Suspected counterfeit product [Unknown]
  - Feeling abnormal [Recovering/Resolving]
